FAERS Safety Report 4482416-0 (Version None)
Quarter: 2004Q4

REPORT INFORMATION
  Report Type: 
  Country: None (occurrence: None)
  Receive Date: 20041022
  Receipt Date: 20041012
  Transmission Date: 20050328
  Serious: Yes (Disabling)
  Sender: FDA-Public Use
  Company Number: US-MERCK-0410USA01758

PATIENT
  Age: 46 Year
  Sex: Female

DRUGS (8)
  1. VIOXX [Suspect]
     Indication: ARTHRITIS
     Route: 048
  2. VIOXX [Suspect]
     Indication: ANALGESIC EFFECT
     Route: 048
  3. XANAX [Concomitant]
     Route: 065
  4. [THERAPY UNSPECIFIED] [Concomitant]
     Route: 065
  5. ASPIRIN [Concomitant]
     Route: 065
  6. SEROQUEL [Concomitant]
     Route: 065
  7. PREMARIN [Concomitant]
     Route: 065
  8. LAMICTAL [Concomitant]
     Route: 065

REACTIONS (11)
  - ADVERSE EVENT [None]
  - BLOOD URINE PRESENT [None]
  - BURNING SENSATION [None]
  - CEREBROVASCULAR ACCIDENT [None]
  - DYSPNOEA [None]
  - FALL [None]
  - FATIGUE [None]
  - HYPOAESTHESIA [None]
  - MUSCLE CRAMP [None]
  - MYALGIA [None]
  - TRANSIENT ISCHAEMIC ATTACK [None]
